FAERS Safety Report 8519757 (Version 2)
Quarter: 2012Q4

REPORT INFORMATION
  Report Type: 
  Country: US (occurrence: US)
  Receive Date: 20120418
  Receipt Date: 20121120
  Transmission Date: 20130627
  Serious: No
  Sender: FDA-Public Use
  Company Number: US-ASTRAZENECA-2012SE06964

PATIENT
  Age: 55 Year
  Sex: Female
  Weight: 64.9 kg

DRUGS (2)
  1. NEXIUM [Suspect]
     Indication: GASTROOESOPHAGEAL REFLUX DISEASE
     Route: 048
  2. VICODIN [Concomitant]

REACTIONS (10)
  - Gastrointestinal inflammation [Unknown]
  - Dyspepsia [Unknown]
  - Gastritis [Unknown]
  - Colitis ulcerative [Unknown]
  - Tendonitis [Unknown]
  - Bursitis [Unknown]
  - Ligament rupture [Unknown]
  - Tendon rupture [Unknown]
  - Incorrect drug administration duration [Unknown]
  - Drug dose omission [Unknown]
